FAERS Safety Report 5469612-0 (Version None)
Quarter: 2007Q3

REPORT INFORMATION
  Report Type: 
  Country: None (occurrence: None)
  Receive Date: 20070925
  Receipt Date: 20070925
  Transmission Date: 20080115
  Serious: Yes (Death)
  Sender: FDA-Public Use
  Company Number: None

PATIENT
  Age: 78 Year
  Sex: Female

DRUGS (18)
  1. AMOXICILLIN [Suspect]
     Indication: OSTEOMYELITIS
     Dosage: 875MG BID PO
     Route: 048
     Dates: start: 20070313, end: 20070316
  2. AMOXICILLIN [Suspect]
     Indication: UROSEPSIS
     Dosage: 875MG BID PO
     Route: 048
     Dates: start: 20070313, end: 20070316
  3. CEFEPIME [Suspect]
     Indication: OSTEOMYELITIS
     Dosage: 1GM DAILY IV DRIP
     Route: 041
     Dates: start: 20060312, end: 20070315
  4. CEFEPIME [Suspect]
     Indication: UROSEPSIS
     Dosage: 1GM DAILY IV DRIP
     Route: 041
     Dates: start: 20060312, end: 20070315
  5. LEVOFLOXACIN [Concomitant]
  6. VANCOMYCIN [Concomitant]
  7. FLUCONAZOLE [Concomitant]
  8. PANTOPRAZOLE SODIUM [Concomitant]
  9. ALLOPURINOL [Concomitant]
  10. AMITRIPTYLINE HCL [Concomitant]
  11. ASPIRN [Concomitant]
  12. ATORVASTATIN CALCIUM [Concomitant]
  13. CARVEDILOL [Concomitant]
  14. DOCUSATE [Concomitant]
  15. POLYETHYLENE GLYCOL [Concomitant]
  16. INSULIN [Concomitant]
  17. ERYTHROPOEITIN [Concomitant]
  18. ENOXAPARIN SODIUM [Concomitant]

REACTIONS (4)
  - CLOSTRIDIAL INFECTION [None]
  - COLITIS [None]
  - GENERAL PHYSICAL HEALTH DETERIORATION [None]
  - HYPOTENSION [None]
